FAERS Safety Report 8272806-2 (Version None)
Quarter: 2012Q2

REPORT INFORMATION
  Report Type: 
  Country: None (occurrence: None)
  Receive Date: 20120411
  Receipt Date: 20120403
  Transmission Date: 20120825
  Serious: No
  Sender: FDA-Public Use
  Company Number: US-BIOGENIDEC-2011BI012338

PATIENT
  Age: 42 Year
  Sex: Female

DRUGS (3)
  1. TYSABRI [Suspect]
     Indication: MULTIPLE SCLEROSIS
     Route: 042
     Dates: start: 20071022
  2. ADDERALL 5 [Concomitant]
     Indication: FATIGUE
     Dates: end: 20110101
  3. PROVIGIL [Concomitant]
     Indication: FATIGUE

REACTIONS (8)
  - GENERAL SYMPTOM [None]
  - MULTIPLE SCLEROSIS [None]
  - FATIGUE [None]
  - MEMORY IMPAIRMENT [None]
  - EMOTIONAL DISORDER [None]
  - HYPERACUSIS [None]
  - HYPERSOMNIA [None]
  - MANIA [None]
